FAERS Safety Report 6243046-3 (Version None)
Quarter: 2009Q2

REPORT INFORMATION
  Report Type: 
  Country: None (occurrence: None)
  Receive Date: 20090617
  Receipt Date: 20080430
  Transmission Date: 20091009
  Serious: No
  Sender: FDA-Public Use
  Company Number: 274931

PATIENT
  Age: 35 Year
  Sex: Female

DRUGS (1)
  1. LEVEMIR [Suspect]
     Indication: TYPE 1 DIABETES MELLITUS
     Dosage: 20 IU, BID, SUBCUTAN.-PUMP
     Route: 058
     Dates: start: 20080401, end: 20080430

REACTIONS (2)
  - INJECTION SITE HAEMATOMA [None]
  - INJECTION SITE PAIN [None]
